FAERS Safety Report 6150781-4 (Version None)
Quarter: 2009Q2

REPORT INFORMATION
  Report Type: 
  Country: None (occurrence: None)
  Receive Date: 20090408
  Receipt Date: 20090331
  Transmission Date: 20091009
  Serious: Yes (Other)
  Sender: FDA-Public Use
  Company Number: 2009AL001872

PATIENT
  Sex: Female

DRUGS (1)
  1. DIGOXIN [Suspect]
     Dosage: UNKNOWN, UNK, PO
     Route: 048

REACTIONS (6)
  - ANXIETY [None]
  - DISCOMFORT [None]
  - EMOTIONAL DISORDER [None]
  - FEAR [None]
  - INJURY [None]
  - PAIN [None]
